FAERS Safety Report 9042537 (Version 1)
Quarter: 2013Q1

REPORT INFORMATION
  Report Type: Report from Study
  Country: US (occurrence: US)
  Receive Date: 20130129
  Receipt Date: 20130129
  Transmission Date: 20140127
  Serious: No
  Sender: FDA-Public Use
  Company Number: US-ABBOTT-12P-163-0906859-00

PATIENT
  Age: 47 Year
  Sex: Male

DRUGS (4)
  1. HUMIRA 40 MG/0.8 ML PEN [Suspect]
     Indication: PSORIASIS
     Route: 058
     Dates: start: 20110125
  2. ACCUPRIL [Concomitant]
     Indication: TYPE 2 DIABETES MELLITUS
  3. CRESTOR [Concomitant]
     Indication: HYPERTENSION
  4. ACTOS [Concomitant]
     Indication: DIABETES MELLITUS

REACTIONS (2)
  - Injection site haemorrhage [Recovered/Resolved]
  - Abdominal distension [Not Recovered/Not Resolved]
